FAERS Safety Report 21123856 (Version 1)
Quarter: 2022Q3

REPORT INFORMATION
  Report Type: Spontaneous
  Country: DK (occurrence: DK)
  Receive Date: 20220725
  Receipt Date: 20220725
  Transmission Date: 20221027
  Serious: Yes (Death)
  Sender: FDA-Public Use
  Company Number: None

PATIENT
  Age: 53 Year
  Sex: Female

DRUGS (5)
  1. HALOPERIDOL DECANOATE [Suspect]
     Active Substance: HALOPERIDOL DECANOATE
     Indication: Schizoaffective disorder
     Dosage: DOSAGE, STRENGTH AND START DATE: UNKNOWN
     Route: 065
  2. COMIRNATY [Suspect]
     Active Substance: TOZINAMERAN
     Indication: COVID-19 immunisation
     Dosage: DOSE 3
     Route: 065
     Dates: start: 20211209, end: 20211209
  3. SERENASE DEKANOAT [Concomitant]
     Indication: Sedative therapy
     Dosage: STRENGTH: 50 MG. DOSAGE: 50 MG IN THE MORNING AND 150 MG AT NIGHT
     Route: 048
     Dates: start: 20200715
  4. CHLORPROTHIXENE [Concomitant]
     Active Substance: CHLORPROTHIXENE
     Indication: Sedative therapy
     Dosage: STRENGTH: 50 MG. DOSAGE: 50 MG IN THE MORNING AND 150 MG AT NIGHT
     Route: 048
     Dates: start: 20200715
  5. LITHIUM CITRATE [Concomitant]
     Active Substance: LITHIUM CITRATE
     Indication: Mood swings
     Dosage: STRENGTH: 6 MMOL LI+
     Route: 048
     Dates: start: 20210227

REACTIONS (2)
  - Toxicity to various agents [Fatal]
  - Malaise [Fatal]

NARRATIVE: CASE EVENT DATE: 20211209
